FAERS Safety Report 8046665-7 (Version None)
Quarter: 2012Q1

REPORT INFORMATION
  Report Type: 
  Country: None (occurrence: None)
  Receive Date: 20120115
  Receipt Date: 20110125
  Transmission Date: 20120608
  Serious: No
  Sender: FDA-Public Use
  Company Number: US-ALLERGAN-1101122US

PATIENT
  Age: 80 Year
  Sex: Female

DRUGS (2)
  1. BLEPHAMIDE S.O.P. [Suspect]
     Indication: DRY EYE
  2. BLEPHAMIDE S.O.P. [Suspect]
     Indication: EYE IRRITATION
     Dosage: 1 DF, TID
     Route: 047
     Dates: start: 20101229, end: 20110124

REACTIONS (2)
  - OCULAR HYPERAEMIA [None]
  - ERYTHEMA OF EYELID [None]
